FAERS Safety Report 12777428 (Version 1)
Quarter: 2016Q3

REPORT INFORMATION
  Report Type: Spontaneous
  Country: US (occurrence: US)
  Receive Date: 20160924
  Receipt Date: 20160924
  Transmission Date: 20161109
  Serious: No
  Sender: FDA-Public Use
  Company Number: US-009507513-1609USA004450

PATIENT
  Sex: Female
  Weight: 85.71 kg

DRUGS (1)
  1. NEXPLANON [Suspect]
     Active Substance: ETONOGESTREL
     Indication: CONTRACEPTION
     Dosage: 1IMPLANT EVERY 3 YEARS; IN THE LEFT ARM
     Route: 059
     Dates: start: 20150605

REACTIONS (8)
  - Menorrhagia [Unknown]
  - Implant site pain [Unknown]
  - Medical device site discomfort [Unknown]
  - Muscle spasms [Recovered/Resolved]
  - Fall [Unknown]
  - Insomnia [Unknown]
  - Metrorrhagia [Unknown]
  - Pain in extremity [Unknown]

NARRATIVE: CASE EVENT DATE: 2016
